FAERS Safety Report 15294318 (Version 6)
Quarter: 2022Q4

REPORT INFORMATION
  Report Type: Report from Study
  Country: US (occurrence: US)
  Receive Date: 20180820
  Receipt Date: 20221104
  Transmission Date: 20230112
  Serious: Yes (Hospitalization)
  Sender: FDA-Public Use
  Company Number: US-ACADIA PHARMACEUTICALS INC.-ACA-2018-009013

PATIENT
  Age: 73 Year
  Sex: Female

DRUGS (20)
  1. NUPLAZID [Suspect]
     Active Substance: PIMAVANSERIN TARTRATE
     Indication: Parkinson^s disease
     Dosage: 34 MILLIGRAM, QD (EVERY MORNING)
     Route: 048
     Dates: start: 20181023
  2. NUPLAZID [Suspect]
     Active Substance: PIMAVANSERIN TARTRATE
     Dosage: 34 MILLIGRAM, QD
     Route: 048
  3. NUPLAZID [Suspect]
     Active Substance: PIMAVANSERIN TARTRATE
     Indication: Parkinson^s disease psychosis
     Dosage: 34 MG, QD
     Route: 048
     Dates: start: 20180419, end: 20180618
  4. NUPLAZID [Suspect]
     Active Substance: PIMAVANSERIN TARTRATE
     Indication: Hallucination
  5. NUPLAZID [Suspect]
     Active Substance: PIMAVANSERIN TARTRATE
     Indication: Delusion
  6. CARBIDOPA\LEVODOPA [Concomitant]
     Active Substance: CARBIDOPA\LEVODOPA
     Dosage: 25/100 MILLIGRAM, 2 PILLS QAM, 1 PILL AT LUNCH, 2 PILLS AT DINNER
     Route: 048
     Dates: start: 20170911
  7. CARBIDOPA\LEVODOPA [Concomitant]
     Active Substance: CARBIDOPA\LEVODOPA
     Dosage: 25/100 MILLIGRAM, 1 PILL QAM, 2 PILLS AT LUNCH, 2 PILLS QHS
     Route: 048
     Dates: start: 20170911
  8. CLOZAPINE [Concomitant]
     Active Substance: CLOZAPINE
     Dosage: 25 MILLIGRAM, AT BEDTIME
     Route: 048
     Dates: start: 20220715
  9. DONEPEZIL [Concomitant]
     Active Substance: DONEPEZIL
     Dosage: 5 MILLIGRAM, AT DINNER
     Route: 048
     Dates: start: 20190709
  10. ESCITALOPRAM [Concomitant]
     Active Substance: ESCITALOPRAM OXALATE
     Dosage: 10 MILLIGRAM
     Route: 048
     Dates: start: 20210721
  11. LACTASE [Concomitant]
     Active Substance: LACTASE
     Dosage: 1 PILL, PRN (RARELY)
     Route: 048
     Dates: start: 20220112
  12. LEVOTHYROXINE [Concomitant]
     Active Substance: LEVOTHYROXINE
     Dosage: 50 MCG, QD
     Route: 048
     Dates: start: 20210322
  13. MYRBETRIQ [Concomitant]
     Active Substance: MIRABEGRON
     Dosage: 50 MILLIGRAM, QD
     Route: 048
     Dates: start: 20161129
  14. OMEPRAZOLE [Concomitant]
     Active Substance: OMEPRAZOLE
     Dosage: 40 MILLIGRAM, QD, IN THE MORNING
     Route: 048
     Dates: start: 20161129
  15. ONDANSETRON [Concomitant]
     Active Substance: ONDANSETRON
     Indication: Nausea
     Dosage: 4 MILLIGRAM, PO OR UNDER TONGUE QAM, REPEAT IN 1 HR PRN, MAY TAKE PRN Q8HRS UP TO 2 OTHER TIMES/DAY
     Route: 048
     Dates: start: 20201219
  16. PROMETHAZINE [Concomitant]
     Active Substance: PROMETHAZINE HYDROCHLORIDE
     Dosage: 12.5 MILLIGRAM, PRN, 2 PILLS QAM (MOST MORNING)
     Route: 048
     Dates: start: 20200317
  17. TRAMADOL [Concomitant]
     Active Substance: TRAMADOL
     Indication: Arthralgia
     Dosage: 50 MILLIGRAM, PRN, EXTREMELY RARELY USED, {1X PER COUPLE MONTHS
     Route: 048
     Dates: start: 20180725
  18. TYLENOL EXTRA STRENGTH [Concomitant]
     Active Substance: ACETAMINOPHEN
     Indication: Headache
     Dosage: 500 MILLIGRAM, PRN, 2 PILLS FOR OCCASIONAL HEADACHES OR BACK/SHOULDER PAINS (MOST DAYS)
     Route: 048
     Dates: start: 20171127
  19. TYLENOL EXTRA STRENGTH [Concomitant]
     Active Substance: ACETAMINOPHEN
     Indication: Back pain
  20. TYLENOL EXTRA STRENGTH [Concomitant]
     Active Substance: ACETAMINOPHEN
     Indication: Arthralgia

REACTIONS (6)
  - Delusion [Not Recovered/Not Resolved]
  - Surgery [Recovered/Resolved]
  - Ill-defined disorder [Recovered/Resolved]
  - Hallucination [Not Recovered/Not Resolved]
  - Delusion [Unknown]
  - Hallucination [Unknown]

NARRATIVE: CASE EVENT DATE: 20180419
